FAERS Safety Report 4726430-6 (Version None)
Quarter: 2005Q3

REPORT INFORMATION
  Report Type: 
  Country: None (occurrence: None)
  Receive Date: 20050726
  Receipt Date: 20050331
  Transmission Date: 20060218
  Serious: No
  Sender: FDA-Public Use
  Company Number: REM_00094_2005

PATIENT
  Sex: Female
  Weight: 71 kg

DRUGS (12)
  1. REMODULIN [Suspect]
     Indication: PULMONARY HYPERTENSION
     Dosage: 22 NG/KG/MIN CONTINUOUS SC
     Route: 058
     Dates: start: 20050120
  2. FLUOCINOLONE [Concomitant]
  3. PLO FORMULA B [Concomitant]
  4. ABLUTEROL INHALER [Concomitant]
  5. ALBUTEROL [Concomitant]
  6. SYNTHROID [Concomitant]
  7. K-DUR 10 [Concomitant]
  8. DIGOXIN [Concomitant]
  9. FUROSEMIDE [Concomitant]
  10. PREDNISONE [Concomitant]
  11. COUMADIN [Concomitant]
  12. REMICADE [Concomitant]

REACTIONS (1)
  - INFUSION SITE REACTION [None]
